FAERS Safety Report 9000056 (Version 1)
Quarter: 2013Q1

REPORT INFORMATION
  Report Type: Spontaneous
  Country: FR (occurrence: FR)
  Receive Date: 20130102
  Receipt Date: 20130102
  Transmission Date: 20140127
  Serious: Yes (Hospitalization)
  Sender: FDA-Public Use
  Company Number: FR-SANOFI-AVENTIS-2012SA095221

PATIENT
  Age: 55 Year
  Sex: Female

DRUGS (3)
  1. LOVENOX [Suspect]
     Indication: PROPHYLAXIS
     Route: 058
     Dates: start: 20121213
  2. COAPROVEL [Concomitant]
     Indication: HYPERTENSION
     Dosage: 150/12.5 COATED TABLET
     Route: 048
  3. SEROPRAM [Concomitant]
     Dosage: 0.5 TABLET A DAY
     Route: 048

REACTIONS (2)
  - Haematoma [Not Recovered/Not Resolved]
  - Paraesthesia [Not Recovered/Not Resolved]
